FAERS Safety Report 10821067 (Version 1)
Quarter: 2015Q1

REPORT INFORMATION
  Report Type: Spontaneous
  Country: US (occurrence: None)
  Receive Date: 20150212
  Receipt Date: 20150212
  Transmission Date: 20150721
  Serious: Yes (Hospitalization)
  Sender: FDA-Public Use
  Company Number: 2014P1001510

PATIENT
  Age: 17 Year
  Sex: Male
  Weight: 49.3 kg

DRUGS (1)
  1. ACTIMMUNE [Suspect]
     Active Substance: INTERFERON GAMMA-1B
     Indication: CHRONIC GRANULOMATOUS DISEASE

REACTIONS (2)
  - Empyema [None]
  - Pneumonia [None]

NARRATIVE: CASE EVENT DATE: 201401
